FAERS Safety Report 20782583 (Version 1)
Quarter: 2022Q2

REPORT INFORMATION
  Report Type: Spontaneous
  Country: NL (occurrence: NL)
  Receive Date: 20220504
  Receipt Date: 20220504
  Transmission Date: 20220721
  Serious: Yes (Other)
  Sender: FDA-Public Use
  Company Number: NL-ALVOGEN-2022-ALVOGEN-119934

PATIENT
  Age: 10 Year
  Sex: Female

DRUGS (6)
  1. DOXORUBICIN HYDROCHLORIDE [Suspect]
     Active Substance: DOXORUBICIN HYDROCHLORIDE
     Indication: Adrenocortical carcinoma
  2. CISPLATIN [Suspect]
     Active Substance: CISPLATIN
     Indication: Adrenocortical carcinoma
  3. ETOPOSIDE [Suspect]
     Active Substance: ETOPOSIDE
     Indication: Adrenocortical carcinoma
  4. MITOTANE [Suspect]
     Active Substance: MITOTANE
     Indication: Adrenocortical carcinoma
  5. HYDROCORTISONE SODIUM SUCCINATE [Concomitant]
     Active Substance: HYDROCORTISONE SODIUM SUCCINATE
     Indication: Adrenocortical carcinoma
  6. FLUDROCORTISONE ACETATE [Concomitant]
     Active Substance: FLUDROCORTISONE ACETATE
     Indication: Adrenocortical carcinoma

REACTIONS (11)
  - Central hypothyroidism [Unknown]
  - Hypocalcaemia [Unknown]
  - Neutropenia [Unknown]
  - Anaemia [Unknown]
  - Stomatitis [Unknown]
  - Nausea [Unknown]
  - Neurotoxicity [Unknown]
  - Vaginal discharge [Unknown]
  - Menstruation irregular [Unknown]
  - Growth retardation [Unknown]
  - Fatigue [Unknown]
